APPROVED DRUG PRODUCT: METRONIDAZOLE
Active Ingredient: METRONIDAZOLE
Strength: 500MG/100ML
Dosage Form/Route: INJECTABLE;INJECTION
Application: A070004 | Product #001
Applicant: INTERNATIONAL MEDICATION SYSTEMS LTD
Approved: May 8, 1985 | RLD: No | RS: No | Type: DISCN